FAERS Safety Report 14119757 (Version 2)
Quarter: 2017Q4

REPORT INFORMATION
  Report Type: Report from Study
  Country: AR (occurrence: AR)
  Receive Date: 20171024
  Receipt Date: 20171027
  Transmission Date: 20180321
  Serious: Yes (Death, Hospitalization)
  Sender: FDA-Public Use
  Company Number: PHHY2017AR156004

PATIENT
  Age: 79 Year
  Sex: Male

DRUGS (1)
  1. ENTRESTO [Suspect]
     Active Substance: SACUBITRIL\VALSARTAN
     Indication: CARDIAC FAILURE CHRONIC
     Dosage: 50 MG, BID
     Route: 065
     Dates: start: 20160915

REACTIONS (7)
  - Dysuria [Unknown]
  - Vomiting [Fatal]
  - Gastroenteritis [Fatal]
  - Strangulated hernia [Fatal]
  - Post procedural complication [Unknown]
  - Renal impairment [Unknown]
  - Abdominal pain upper [Fatal]

NARRATIVE: CASE EVENT DATE: 20161231
